FAERS Safety Report 15133712 (Version 1)
Quarter: 2018Q3

REPORT INFORMATION
  Report Type: Spontaneous
  Country: IN (occurrence: IN)
  Receive Date: 20180712
  Receipt Date: 20180712
  Transmission Date: 20181010
  Serious: Yes (Hospitalization, Other)
  Sender: FDA-Public Use
  Company Number: IN-009507513-1807IND003131

PATIENT
  Age: 14 Year
  Sex: Female
  Weight: 30 kg

DRUGS (6)
  1. IMIPENEM AND CILASTATIN [Suspect]
     Active Substance: CILASTATIN SODIUM\IMIPENEM
     Dosage: UNK
     Dates: start: 20161004
  2. DELAMANID [Suspect]
     Active Substance: DELAMANID
     Indication: TUBERCULOSIS
     Dosage: 50 MG, TWICE DAILY
     Route: 048
     Dates: start: 20160404
  3. BEDAQUILINE [Concomitant]
     Active Substance: BEDAQUILINE
     Indication: TUBERCULOSIS
     Dosage: UNK
     Dates: start: 20160404
  4. LINEZOLID. [Concomitant]
     Active Substance: LINEZOLID
     Indication: TUBERCULOSIS
     Dosage: UNK
  5. MOXIFLOXACIN. [Concomitant]
     Active Substance: MOXIFLOXACIN
     Indication: TUBERCULOSIS
     Dosage: UNK
  6. IMIPENEM AND CILASTATIN [Suspect]
     Active Substance: CILASTATIN SODIUM\IMIPENEM
     Indication: PRODUCT USED FOR UNKNOWN INDICATION
     Dosage: 1 G, TWO TIMES IN A DAY
     Route: 042
     Dates: start: 20160404, end: 20161003

REACTIONS (8)
  - Incorrect dose administered [Unknown]
  - Device related infection [Recovered/Resolved]
  - Upper respiratory tract infection [Unknown]
  - Incorrect drug administration duration [Unknown]
  - Sepsis [Recovered/Resolved]
  - Drug administered to patient of inappropriate age [Unknown]
  - Pyrexia [Unknown]
  - Candida test positive [Unknown]

NARRATIVE: CASE EVENT DATE: 2016
